FAERS Safety Report 11857518 (Version 3)
Quarter: 2017Q3

REPORT INFORMATION
  Report Type: Report from Study
  Country: US (occurrence: US)
  Receive Date: 20151221
  Receipt Date: 20170829
  Transmission Date: 20171127
  Serious: Yes (Other)
  Sender: FDA-Public Use
  Company Number: PHEH2015US026572

PATIENT
  Age: 1 Year
  Sex: Male
  Weight: 10.5 kg

DRUGS (2)
  1. GILENYA [Suspect]
     Active Substance: FINGOLIMOD HYDROCHLORIDE
     Indication: PRODUCT USED FOR UNKNOWN INDICATION
     Dosage: 2 PILLS, ONCE/SINGLE (CHEWED)
     Route: 048
     Dates: start: 20151217
  2. THYROID [Suspect]
     Active Substance: LEVOTHYROXINE\LIOTHYRONINE
     Indication: PRODUCT USED FOR UNKNOWN INDICATION
     Dosage: 1 PILL, ONCE/SINGLE
     Route: 065
     Dates: start: 20151217

REACTIONS (5)
  - Accidental exposure to product by child [Unknown]
  - Blood pressure diastolic increased [Unknown]
  - Heart rate increased [Recovered/Resolved]
  - Rhinorrhoea [Unknown]
  - Blood pressure systolic increased [Unknown]

NARRATIVE: CASE EVENT DATE: 20151217
